FAERS Safety Report 5347026-1 (Version None)
Quarter: 2007Q2

REPORT INFORMATION
  Report Type: 
  Country: None (occurrence: None)
  Receive Date: 20070604
  Receipt Date: 20070529
  Transmission Date: 20071010
  Serious: Yes (Death)
  Sender: FDA-Public Use
  Company Number: 2007-159239-NL

PATIENT
  Age: 75 Year
  Sex: Female

DRUGS (6)
  1. MIRTAZAPINE [Suspect]
     Indication: DEPRESSION
     Dosage: 30 MG ORAL
     Route: 048
     Dates: start: 20070316, end: 20070317
  2. DEXAMETHASONE 0.5MG TAB [Concomitant]
  3. OMEPRAZOLE [Concomitant]
  4. DIGOXIN [Concomitant]
  5. PHENYTOIN SODIUM [Concomitant]
  6. FUROSEMIDE [Concomitant]

REACTIONS (1)
  - HEPATITIS [None]
